FAERS Safety Report 5097797-7 (Version None)
Quarter: 2006Q3

REPORT INFORMATION
  Report Type: 
  Country: None (occurrence: None)
  Receive Date: 20060731
  Receipt Date: 20060118
  Transmission Date: 20061208
  Serious: Yes (Other)
  Sender: FDA-Public Use
  Company Number: 221263

PATIENT
  Age: 71 Year
  Sex: Female

DRUGS (2)
  1. HERCEPTIN [Suspect]
     Indication: BREAST CANCER METASTATIC
     Dosage: 2 MG/KG
     Dates: start: 20040901, end: 20041201
  2. VINORELBINE [Concomitant]

REACTIONS (5)
  - BLADDER NEOPLASM [None]
  - BLISTER [None]
  - DISEASE PROGRESSION [None]
  - ERYTHEMA [None]
  - NECK MASS [None]
